FAERS Safety Report 6308626-5 (Version None)
Quarter: 2009Q3

REPORT INFORMATION
  Report Type: 
  Country: None (occurrence: None)
  Receive Date: 20090813
  Receipt Date: 20090603
  Transmission Date: 20100115
  Serious: Yes (Life-Threatening)
  Sender: FDA-Public Use
  Company Number: AU-ASTRAZENECA-2009AP03331

PATIENT
  Age: 39 Year
  Sex: Male
  Weight: 68 kg

DRUGS (5)
  1. PROPOFOL [Suspect]
     Route: 042
  2. FENTANYL [Suspect]
     Route: 040
  3. ISOFLURANE [Suspect]
  4. ROCURONIUM BROMIDE [Suspect]
  5. PARACETAMOL [Concomitant]
     Route: 042

REACTIONS (2)
  - RESPIRATORY ARREST [None]
  - SOMNOLENCE [None]
